FAERS Safety Report 20679887 (Version 1)
Quarter: 2022Q2

REPORT INFORMATION
  Report Type: Spontaneous
  Country: GB (occurrence: GB)
  Receive Date: 20220406
  Receipt Date: 20220406
  Transmission Date: 20220721
  Serious: Yes (Hospitalization, Other)
  Sender: FDA-Public Use
  Company Number: None

PATIENT
  Age: 78 Year
  Sex: Female

DRUGS (14)
  1. LINEZOLID [Suspect]
     Active Substance: LINEZOLID
     Indication: Intra-abdominal fluid collection
     Dosage: UNK
  2. ATORVASTATIN [Concomitant]
     Active Substance: ATORVASTATIN
     Dosage: 20 MG, 1X/DAY (EVERY NIGHT)
  3. BISOPROLOL [Concomitant]
     Active Substance: BISOPROLOL
     Dosage: 2.5 MG, 1X/DAY (EVERY MORNING)
  4. BECLOMETHASONE DIPROPIONATE [Concomitant]
     Active Substance: BECLOMETHASONE DIPROPIONATE
     Dosage: 100 UG, 2X/DAY
     Route: 055
  5. CALCIUM\CHOLECALCIFEROL [Concomitant]
     Active Substance: CALCIUM\CHOLECALCIFEROL
     Dosage: 1 DF (2 EVERY HOUR)
  6. CIPROFLOXACIN [Concomitant]
     Active Substance: CIPROFLOXACIN
     Dosage: 750 MG, 2X/DAY
  7. FOLIC ACID [Concomitant]
     Active Substance: FOLIC ACID
     Dosage: 5 MG, 1X/DAY
  8. FELODIPINE [Concomitant]
     Active Substance: FELODIPINE
     Dosage: 10 MG, 1X/DAY (EVERY MORNING)
  9. LANSOPRAZOLE [Concomitant]
     Active Substance: LANSOPRAZOLE
     Dosage: 15 MG, 1X/DAY (EVERY MORNING)
  10. METRONIDAZOLE [Concomitant]
     Active Substance: METRONIDAZOLE
     Dosage: 400 MG, 3X/DAY
  11. ONDANSETRON [Concomitant]
     Active Substance: ONDANSETRON
     Dosage: 4 MG, AS NEEDED
  12. ACETAMINOPHEN [Concomitant]
     Active Substance: ACETAMINOPHEN
     Dosage: 1 G, 4X/DAY
  13. PREDNISOLONE [Concomitant]
     Active Substance: PREDNISOLONE
     Dosage: 8 MG, 1X/DAY (EVERY MORNING)
  14. ALBUTEROL [Concomitant]
     Active Substance: ALBUTEROL
     Dosage: UNK
     Route: 055

REACTIONS (3)
  - Pancytopenia [Recovered/Resolved]
  - Acute kidney injury [Unknown]
  - Off label use [Unknown]
